FAERS Safety Report 8423438-4 (Version None)
Quarter: 2012Q2

REPORT INFORMATION
  Report Type: 
  Country: None (occurrence: None)
  Receive Date: 20120608
  Receipt Date: 20120530
  Transmission Date: 20120825
  Serious: Yes (Hospitalization)
  Sender: FDA-Public Use
  Company Number: JP-VERTEX PHARMACEUTICALS INC.-AE-2012-008161

PATIENT
  Age: 60 Year
  Sex: Female

DRUGS (11)
  1. PEGINTERFERON ALFA-2B [Concomitant]
     Route: 051
     Dates: start: 20120518
  2. TELAVIC (TELAPREVIR) [Suspect]
     Indication: HEPATITIS C
     Route: 048
     Dates: start: 20120417
  3. PEGINTERFERON ALFA-2B [Concomitant]
     Route: 051
  4. NEUFAN [Concomitant]
     Route: 048
     Dates: start: 20120514
  5. TELAVIC (TELAPREVIR) [Suspect]
     Route: 048
     Dates: start: 20120524
  6. TELAVIC (TELAPREVIR) [Suspect]
     Route: 048
     Dates: start: 20120514, end: 20120524
  7. RIBAVIRIN [Concomitant]
     Route: 048
  8. RIBAVIRIN [Concomitant]
     Route: 048
     Dates: start: 20120515
  9. PEGINTERFERON ALFA-2B [Concomitant]
     Route: 051
     Dates: start: 20120525
  10. RIBAVIRIN [Concomitant]
     Route: 048
     Dates: start: 20120511, end: 20120514
  11. TPN ELECTROLYTES IN PLASTIC CONTAINER [Concomitant]
     Dates: start: 20120511, end: 20120517

REACTIONS (2)
  - RENAL FAILURE [None]
  - HYPERURICAEMIA [None]
